FAERS Safety Report 25793464 (Version 1)
Quarter: 2025Q3

REPORT INFORMATION
  Report Type: Spontaneous
  Country: US (occurrence: US)
  Receive Date: 20250911
  Receipt Date: 20250911
  Transmission Date: 20251020
  Serious: No
  Sender: MERCK SHARP & DOHME LLC
  Company Number: US-009507513-2327871

PATIENT
  Age: 13 Year
  Sex: Male

DRUGS (9)
  1. TEMOZOLOMIDE [Suspect]
     Active Substance: TEMOZOLOMIDE
     Indication: Astrocytoma, low grade
     Route: 048
  2. BEVACIZUMAB [Concomitant]
     Active Substance: BEVACIZUMAB
     Indication: Astrocytoma, low grade
  3. VEMURAFENIB [Concomitant]
     Active Substance: VEMURAFENIB
     Indication: Astrocytoma, low grade
  4. DABRAFENIB [Concomitant]
     Active Substance: DABRAFENIB
     Indication: Astrocytoma, low grade
  5. TRAMETINIB [Concomitant]
     Active Substance: TRAMETINIB
     Indication: Astrocytoma, low grade
  6. ENCORAFENIB [Concomitant]
     Active Substance: ENCORAFENIB
     Indication: Astrocytoma, low grade
  7. BINIMETINIB [Concomitant]
     Active Substance: BINIMETINIB
     Indication: Astrocytoma, low grade
  8. TOVORAFENIB [Concomitant]
     Active Substance: TOVORAFENIB
     Indication: Astrocytoma, low grade
  9. combination procarbazine [Concomitant]
     Indication: Astrocytoma, low grade

REACTIONS (1)
  - Product use in unapproved indication [Unknown]
